FAERS Safety Report 9154509 (Version 1)
Quarter: 2013Q1

REPORT INFORMATION
  Report Type: Spontaneous
  Country: US (occurrence: None)
  Receive Date: 20130206
  Receipt Date: 20130206
  Transmission Date: 20140127
  Serious: Yes (Other)
  Sender: FDA-Public Use
  Company Number: 2013010137

PATIENT
  Age: 50 Year
  Sex: Male

DRUGS (1)
  1. MESALAMINE [Suspect]

REACTIONS (1)
  - Nephrotic syndrome [None]
